FAERS Safety Report 13807561 (Version 1)
Quarter: 2017Q3

REPORT INFORMATION
  Report Type: Spontaneous
  Country: IT (occurrence: IT)
  Receive Date: 20170728
  Receipt Date: 20170728
  Transmission Date: 20171127
  Serious: Yes (Other)
  Sender: FDA-Public Use
  Company Number: IT-TEVA-790978ACC

PATIENT
  Sex: Female

DRUGS (2)
  1. CAELYX - JANSSEN-CILAG INTERNATIONAL N.V. [Suspect]
     Active Substance: DOXORUBICIN HYDROCHLORIDE
     Indication: OVARIAN NEOPLASM
  2. CARBOPLATIN. [Suspect]
     Active Substance: CARBOPLATIN
     Indication: OVARIAN NEOPLASM

REACTIONS (1)
  - Carbohydrate antigen 125 increased [Unknown]
